FAERS Safety Report 24602136 (Version 1)
Quarter: 2024Q4

REPORT INFORMATION
  Report Type: Spontaneous
  Country: FR (occurrence: FR)
  Receive Date: 20241111
  Receipt Date: 20241111
  Transmission Date: 20250114
  Serious: Yes (Other)
  Sender: EPIC PHARM
  Company Number: FR-EPICPHARMA-FR-2024EPCLIT01379

PATIENT
  Age: 46 Year
  Sex: Male

DRUGS (1)
  1. OFLOXACIN [Suspect]
     Active Substance: OFLOXACIN
     Indication: Dysuria
     Route: 065

REACTIONS (2)
  - Superior mesenteric artery dissection [Not Recovered/Not Resolved]
  - Product use in unapproved indication [Unknown]
